FAERS Safety Report 20350005 (Version 1)
Quarter: 2022Q1

REPORT INFORMATION
  Report Type: Spontaneous
  Country: US (occurrence: None)
  Receive Date: 20220117
  Receipt Date: 20220117
  Transmission Date: 20220424
  Serious: Yes (Death, Life-Threatening, Hospitalization)
  Sender: FDA-Public Use
  Company Number: None

PATIENT
  Age: 54 Year
  Sex: Male
  Weight: 107 kg

DRUGS (21)
  1. ACTEMRA [Suspect]
     Active Substance: TOCILIZUMAB
     Indication: COVID-19
     Dosage: OTHER FREQUENCY : ONCE;?
     Route: 042
     Dates: start: 20220104, end: 20220104
  2. ACETAMINOPHEN [Concomitant]
     Active Substance: ACETAMINOPHEN
     Dates: start: 20220108
  3. ASPIRIN [Concomitant]
     Active Substance: ASPIRIN
     Dates: start: 202201
  4. ENOXAPARIN [Concomitant]
     Active Substance: ENOXAPARIN
     Dates: start: 20220109, end: 20220111
  5. FENTANYL [Concomitant]
     Active Substance: FENTANYL
     Dates: start: 20220108
  6. FOLIC ACID [Concomitant]
     Active Substance: FOLIC ACID
     Dates: start: 202201, end: 20220113
  7. HEPARIN [Concomitant]
     Active Substance: HEPARIN SODIUM
     Dates: start: 202201
  8. LACTOBACILLUS ACIDOPHILUS [Concomitant]
     Active Substance: LACTOBACILLUS ACIDOPHILUS
     Dates: start: 202201, end: 20220113
  9. LORAZEPAM [Concomitant]
     Active Substance: LORAZEPAM
     Dates: start: 20220108, end: 20220109
  10. MIDAZOLAM [Concomitant]
     Active Substance: MIDAZOLAM
     Dates: start: 20220109, end: 20220110
  11. MIDODRINE [Concomitant]
     Active Substance: MIDODRINE
     Dates: start: 202201, end: 20220114
  12. NOREPINEPHRINE [Concomitant]
     Active Substance: NOREPINEPHRINE
     Dates: start: 202201
  13. PANTOPRAZOLE [Concomitant]
     Active Substance: PANTOPRAZOLE
     Dates: start: 20220109, end: 20220113
  14. POTASSIUM PHOSPHATE [Concomitant]
     Active Substance: POTASSIUM PHOSPHATE
     Dates: start: 20220108, end: 20220109
  15. PROPOFOL [Concomitant]
     Active Substance: PROPOFOL
     Dates: start: 20220109
  16. QUETIAPINE [Concomitant]
     Active Substance: QUETIAPINE
     Dates: start: 202201, end: 20220113
  17. ROCURONIUM [Concomitant]
     Active Substance: ROCURONIUM BROMIDE
     Dates: start: 202201, end: 20220114
  18. SODIUM ACETATE [Concomitant]
     Active Substance: SODIUM ACETATE
     Dates: start: 20220108, end: 20220109
  19. VECURONIUM [Concomitant]
     Active Substance: VECURONIUM BROMIDE
     Dates: start: 202201, end: 20220112
  20. ZINC SULFATE [Concomitant]
     Active Substance: ZINC SULFATE
     Dates: start: 20220108, end: 20220109
  21. PHENOBARBITAL [Concomitant]
     Active Substance: PHENOBARBITAL
     Dates: start: 20220109, end: 20220113

REACTIONS (12)
  - Device signal detection issue [None]
  - Respiratory gas exchange disorder [None]
  - Procalcitonin increased [None]
  - Pneumonia [None]
  - Refusal of treatment by patient [None]
  - Hypotension [None]
  - General physical health deterioration [None]
  - Oxygen saturation decreased [None]
  - Shock [None]
  - Acute kidney injury [None]
  - Terminal state [None]
  - Fibrin D dimer increased [None]

NARRATIVE: CASE EVENT DATE: 20220109
